FAERS Safety Report 7624570-5 (Version None)
Quarter: 2011Q3

REPORT INFORMATION
  Report Type: 
  Country: None (occurrence: None)
  Receive Date: 20110720
  Receipt Date: 20090213
  Transmission Date: 20111222
  Serious: No
  Sender: FDA-Public Use
  Company Number: US-BAYER-200912780NA

PATIENT
  Age: 79 Year
  Sex: Male
  Weight: 98.413 kg

DRUGS (22)
  1. TEGRETOL [Concomitant]
     Dosage: 100 MG IN MORNING, 50MG IN EVENING
     Route: 048
  2. VANCOMYCIN [Concomitant]
     Dosage: 1 G X2
     Route: 042
     Dates: start: 20070709
  3. LASIX [Concomitant]
     Dosage: 40 MG, QOD
     Route: 048
  4. ANCEF [Concomitant]
     Dosage: UNK
     Route: 042
     Dates: start: 20070709
  5. HEPARIN [Concomitant]
     Dosage: 28000 U, UNK
     Route: 042
     Dates: start: 20070709
  6. TRASYLOL [Suspect]
     Indication: CORONARY ARTERY BYPASS
     Dosage: 200 ML CARDIOPULMONARY BYPASS PRIME
     Dates: start: 20070709, end: 20070709
  7. METOLAZONE [Concomitant]
     Dosage: 5 MG, QOD
     Route: 048
  8. FENTANYL-100 [Concomitant]
     Dosage: UNK
     Dates: start: 20070709
  9. RED BLOOD CELLS [Concomitant]
     Dosage: 1906 ML, UNK
     Route: 042
     Dates: start: 20070709
  10. TRASYLOL [Suspect]
     Dosage: 50ML/HR INFUSION
     Route: 042
     Dates: start: 20070709, end: 20070709
  11. TRAMADOL HCL [Concomitant]
     Dosage: 50 MG, TID
     Route: 048
  12. ISOVUE-128 [Concomitant]
     Indication: CATHETERISATION CARDIAC
     Dosage: UNK
     Dates: start: 20070620
  13. TRASYLOL [Suspect]
     Indication: MITRAL VALVE REPAIR
     Dosage: 200 ML, ONCE LOADING DOSE
     Route: 042
     Dates: start: 20070709, end: 20070709
  14. ACETYLSALICYLIC ACID SRT [Concomitant]
     Dosage: 81 MG, QD
     Route: 048
  15. VANCOMYCIN [Concomitant]
     Dosage: 1 G, UNK
     Route: 042
  16. CELEBREX [Concomitant]
     Dosage: 200 MG, QD
     Route: 048
  17. VERSED [Concomitant]
     Dosage: UNK
     Dates: start: 20070709
  18. TOPROL-XL [Concomitant]
     Dosage: 50 MG, QD
     Route: 048
  19. ENALAPRIL MALEATE [Concomitant]
  20. CIPROFLOXACIN [Concomitant]
     Dosage: 500 MG, UNK
     Route: 042
  21. ANCEF [Concomitant]
     Dosage: 1 G, UNK
     Route: 042
  22. LEVOPHED [Concomitant]
     Dosage: UNK
     Dates: start: 20070709

REACTIONS (5)
  - RENAL FAILURE [None]
  - INJURY [None]
  - PAIN [None]
  - UNEVALUABLE EVENT [None]
  - RENAL FAILURE ACUTE [None]
